FAERS Safety Report 6290414-X (Version None)
Quarter: 2009Q3

REPORT INFORMATION
  Report Type: 
  Country: None (occurrence: None)
  Receive Date: 20090730
  Receipt Date: 20090413
  Transmission Date: 20100115
  Serious: No
  Sender: FDA-Public Use
  Company Number: US-BRISTOL-MYERS SQUIBB COMPANY-14574982

PATIENT
  Age: 82 Year
  Sex: Female
  Weight: 51 kg

DRUGS (2)
  1. COUMADIN [Suspect]
     Indication: ATRIAL FIBRILLATION
     Dosage: 4MG,QD ON FRI.3MD,QD ON REMAINING DAYS.WARFARIN 4MG QD ON MON,WED,FRI, 3MG ON REMAINING DAYS
     Dates: start: 20000101
  2. BENICAR [Suspect]

REACTIONS (4)
  - DYSPNOEA [None]
  - INTERNATIONAL NORMALISED RATIO INCREASED [None]
  - LIP SWELLING [None]
  - RASH [None]
